FAERS Safety Report 5308039-9 (Version None)
Quarter: 2007Q1

REPORT INFORMATION
  Report Type: 
  Country: None (occurrence: None)
  Receive Date: 20070130
  Receipt Date: 20060224
  Transmission Date: 20070707
  Serious: Yes (Other)
  Sender: FDA-Public Use
  Company Number: 438054

PATIENT
  Age: 52 Year
  Sex: Female
  Weight: 74.4 kg

DRUGS (8)
  1. COPEGUS [Suspect]
     Indication: HEPATITIS C
     Dosage: 1000 MG 1 PER DAY
     Dates: start: 20041205, end: 20051221
  2. PEGASYS [Suspect]
     Indication: HEPATITIS C
     Dosage: 180 MCG 1 PER WEEK
     Dates: start: 20041205, end: 20050813
  3. PROCRIT [Suspect]
     Indication: ANAEMIA
     Dosage: 40000 IU 1 PER WEEK SUBCUTANEOUS
     Route: 058
     Dates: start: 20050308
  4. INFERGEN [Suspect]
     Indication: HEPATITIS C
     Dosage: 15 MCG 1 PER DAY
     Dates: start: 20050813
  5. NEUPOGEN [Concomitant]
  6. INDERAL [Concomitant]
  7. ZOLOFT [Concomitant]
  8. SYNTHROID [Concomitant]

REACTIONS (1)
  - ANAEMIA [None]
